FAERS Safety Report 13797026 (Version 4)
Quarter: 2017Q3

REPORT INFORMATION
  Report Type: Spontaneous
  Country: US (occurrence: US)
  Receive Date: 20170727
  Receipt Date: 20170915
  Transmission Date: 20171127
  Serious: Yes (Other)
  Sender: FDA-Public Use
  Company Number: US-ABBVIE-10P-163-0800954-00

PATIENT
  Age: 74 Year
  Sex: Male
  Weight: 73.55 kg

DRUGS (8)
  1. TADALAFIL [Concomitant]
     Active Substance: TADALAFIL
     Indication: ERECTILE DYSFUNCTION
  2. ANDROGEL [Suspect]
     Active Substance: TESTOSTERONE
     Dosage: DAILY DOSE: 5 GRAM(S), PACKET VIA PUMP
     Route: 061
     Dates: start: 201003
  3. ANDROGEL [Suspect]
     Active Substance: TESTOSTERONE
     Dosage: STICK PACK
     Route: 061
  4. VITAMIN D 5000 [Concomitant]
     Indication: PRODUCT USED FOR UNKNOWN INDICATION
  5. ANDROGEL [Suspect]
     Active Substance: TESTOSTERONE
     Indication: HYPOGONADISM
     Dosage: DAILY DOSE: 5 GRAM(S), PACKET VIA PUMP
     Route: 061
     Dates: end: 201001
  6. ANDROGEL [Suspect]
     Active Substance: TESTOSTERONE
     Indication: HYPOGONADISM
     Dosage: 1 PUMP ON EACH ARM IN THE MORNING AND THEN AGAIN AT BED TIME.
     Route: 061
     Dates: start: 2011
  7. ANDROGEL [Suspect]
     Active Substance: TESTOSTERONE
     Indication: BLOOD TESTOSTERONE DECREASED
     Dosage: 2 X 50 MG PACKET DAILY
     Route: 061
     Dates: start: 2007
  8. L-ARGININE [Concomitant]
     Active Substance: ARGININE
     Indication: PRODUCT USED FOR UNKNOWN INDICATION

REACTIONS (16)
  - Skin discolouration [Not Recovered/Not Resolved]
  - Intentional product misuse [Unknown]
  - Deafness unilateral [Not Recovered/Not Resolved]
  - Skin lesion [Recovered/Resolved]
  - Skin lesion [Recovered/Resolved]
  - Sunburn [Recovered/Resolved]
  - Thyroid mass [Not Recovered/Not Resolved]
  - Skin lesion [Recovered/Resolved]
  - Erythema [Not Recovered/Not Resolved]
  - Drug administered at inappropriate site [Not Recovered/Not Resolved]
  - Vertigo [Recovered/Resolved]
  - Inappropriate schedule of drug administration [Not Recovered/Not Resolved]
  - Device issue [Not Recovered/Not Resolved]
  - Prostatic specific antigen increased [Recovered/Resolved]
  - Blood testosterone decreased [Unknown]
  - Incorrect dose administered [Not Recovered/Not Resolved]

NARRATIVE: CASE EVENT DATE: 2009
